FAERS Safety Report 5148480-0 (Version None)
Quarter: 2006Q4

REPORT INFORMATION
  Report Type: 
  Country: None (occurrence: None)
  Receive Date: 20061106
  Receipt Date: 20061027
  Transmission Date: 20070319
  Serious: Yes (Hospitalization)
  Sender: FDA-Public Use
  Company Number: 2006AL003321

PATIENT
  Age: 65 Year

DRUGS (6)
  1. IBUPROFEN [Suspect]
     Dosage: 400 MG TID
  2. ASPIRIN [Concomitant]
  3. CLEXANE [Concomitant]
  4. CLOPIDOGREL [Concomitant]
  5. CLOPIDOGREL [Concomitant]
  6. PREDNISOLONE [Concomitant]

REACTIONS (2)
  - HELICOBACTER INFECTION [None]
  - UPPER GASTROINTESTINAL HAEMORRHAGE [None]
